FAERS Safety Report 6934338-0 (Version None)
Quarter: 2010Q3

REPORT INFORMATION
  Report Type: 
  Country: None (occurrence: None)
  Receive Date: 20100820
  Receipt Date: 20100811
  Transmission Date: 20110219
  Serious: Yes (Hospitalization)
  Sender: FDA-Public Use
  Company Number: A0875203A

PATIENT
  Age: 37 Year
  Sex: Male

DRUGS (5)
  1. IMITREX [Suspect]
     Indication: MIGRAINE
     Dosage: 6MG AS REQUIRED
     Route: 058
     Dates: start: 20081217
  2. ZOFRAN [Suspect]
     Route: 042
  3. TORADOL [Suspect]
     Route: 042
  4. ATIVAN [Suspect]
     Route: 042
  5. NO CONCURRENT MEDICATION [Concomitant]

REACTIONS (6)
  - BRADYCARDIA [None]
  - CARDIAC DISORDER [None]
  - HEART RATE DECREASED [None]
  - HEART RATE INCREASED [None]
  - ISCHAEMIA [None]
  - MALAISE [None]
